FAERS Safety Report 21978567 (Version 2)
Quarter: 2023Q4

REPORT INFORMATION
  Report Type: Spontaneous
  Country: US (occurrence: US)
  Receive Date: 20230210
  Receipt Date: 20231222
  Transmission Date: 20240110
  Serious: No
  Sender: FDA-Public Use
  Company Number: US-SA-SAC20230209000451

PATIENT
  Sex: Male

DRUGS (18)
  1. DUPIXENT [Suspect]
     Active Substance: DUPILUMAB
     Indication: Asthma
     Dosage: 300 MG, QOW
     Route: 058
  2. EPIPEN [Concomitant]
     Active Substance: EPINEPHRINE
  3. EPIPEN [Concomitant]
     Active Substance: EPINEPHRINE
  4. FLOVENT [Concomitant]
     Active Substance: FLUTICASONE PROPIONATE
  5. FLOVENT [Concomitant]
     Active Substance: FLUTICASONE PROPIONATE
  6. IPRATROPIUM [Concomitant]
     Active Substance: IPRATROPIUM
  7. IPRATROPIUM [Concomitant]
     Active Substance: IPRATROPIUM
  8. VITAMINS NOS [Concomitant]
     Active Substance: VITAMINS
  9. SINGULAIR [Concomitant]
     Active Substance: MONTELUKAST SODIUM
  10. SINGULAIR [Concomitant]
     Active Substance: MONTELUKAST SODIUM
  11. SYMBICORT [Concomitant]
     Active Substance: BUDESONIDE\FORMOTEROL FUMARATE DIHYDRATE
  12. SYMBICORT [Concomitant]
     Active Substance: BUDESONIDE\FORMOTEROL FUMARATE DIHYDRATE
  13. TYLENOL [Concomitant]
     Active Substance: ACETAMINOPHEN
  14. TYLENOL [Concomitant]
     Active Substance: ACETAMINOPHEN
  15. ALBUTEROL SULFATE [Concomitant]
     Active Substance: ALBUTEROL SULFATE
  16. XYZAL [Concomitant]
     Active Substance: LEVOCETIRIZINE DIHYDROCHLORIDE
  17. XYZAL [Concomitant]
     Active Substance: LEVOCETIRIZINE DIHYDROCHLORIDE
  18. VENTOLIN HFA [Concomitant]
     Active Substance: ALBUTEROL SULFATE

REACTIONS (4)
  - Dyspnoea [Unknown]
  - Asthma [Unknown]
  - Loss of personal independence in daily activities [Unknown]
  - Therapeutic response decreased [Unknown]
